FAERS Safety Report 8182301 (Version 3)
Quarter: 2013Q1

REPORT INFORMATION
  Report Type: Spontaneous
  Country: DK (occurrence: DK)
  Receive Date: 20111014
  Receipt Date: 20130314
  Transmission Date: 20140127
  Serious: Yes (Death, Hospitalization, Other)
  Sender: FDA-Public Use
  Company Number: DK-ROCHE-801852

PATIENT
  Age: 63 Year
  Sex: Male

DRUGS (9)
  1. MABTHERA [Suspect]
     Indication: CHRONIC LYMPHOCYTIC LEUKAEMIA REFRACTORY
     Route: 042
     Dates: start: 20070220, end: 20070314
  2. MABTHERA [Suspect]
     Indication: HAEMOLYSIS
     Dosage: EVERY 2 WEEKS, THEN MAINTAINANCE EVERY 2 MONTHS
     Route: 042
     Dates: start: 20100714, end: 201108
  3. MABTHERA [Suspect]
     Route: 042
     Dates: start: 20090628, end: 20091117
  4. FLUDARABINE [Suspect]
     Indication: CHRONIC LYMPHOCYTIC LEUKAEMIA
     Route: 065
  5. CYCLOPHOSPHAMIDE [Suspect]
     Indication: CHRONIC LYMPHOCYTIC LEUKAEMIA
     Route: 048
     Dates: start: 20070220, end: 20070529
  6. CYCLOPHOSPHAMIDE [Suspect]
     Indication: HAEMOLYSIS
     Route: 048
     Dates: start: 20021104, end: 20040906
  7. CHLORAMBUCIL [Concomitant]
     Indication: CHRONIC LYMPHOCYTIC LEUKAEMIA
     Route: 048
     Dates: start: 20021104, end: 20040906
  8. CHLORAMBUCIL [Concomitant]
     Route: 065
     Dates: start: 20090602, end: 20110816
  9. PREDNISOLON [Concomitant]
     Indication: HAEMOLYSIS
     Route: 048
     Dates: start: 20030416, end: 20030910

REACTIONS (9)
  - Progressive multifocal leukoencephalopathy [Fatal]
  - Tremor [Unknown]
  - Paraesthesia [Unknown]
  - Coordination abnormal [Unknown]
  - Muscular weakness [Unknown]
  - Muscle spasms [Unknown]
  - Muscle spasms [Unknown]
  - Visual field defect [Unknown]
  - Hemiplegia [Unknown]
